FAERS Safety Report 23783012 (Version 3)
Quarter: 2024Q2

REPORT INFORMATION
  Report Type: Spontaneous
  Country: US (occurrence: US)
  Receive Date: 20240425
  Receipt Date: 20240530
  Transmission Date: 20240715
  Serious: No
  Sender: FDA-Public Use
  Company Number: US-PFIZER INC-202400087457

PATIENT
  Age: 54 Year
  Sex: Female
  Weight: 69.4 kg

DRUGS (4)
  1. GENOTROPIN [Suspect]
     Active Substance: SOMATROPIN
     Indication: Secondary adrenocortical insufficiency
     Dosage: 0.4 MG, 1X/DAY
  2. GENOTROPIN [Suspect]
     Active Substance: SOMATROPIN
     Indication: Hypopituitarism
  3. GENOTROPIN [Suspect]
     Active Substance: SOMATROPIN
     Indication: Growth hormone deficiency
  4. GENOTROPIN [Suspect]
     Active Substance: SOMATROPIN
     Indication: Hypopituitarism

REACTIONS (4)
  - Drug dose omission by device [Unknown]
  - Device issue [Unknown]
  - Device breakage [Unknown]
  - Device leakage [Unknown]
